FAERS Safety Report 13278681 (Version 1)
Quarter: 2017Q1

REPORT INFORMATION
  Report Type: Spontaneous
  Country: AU (occurrence: AU)
  Receive Date: 20170228
  Receipt Date: 20170228
  Transmission Date: 20170428
  Serious: Yes (Other)
  Sender: FDA-Public Use
  Company Number: AU-MYLANLABS-2017M1011271

PATIENT

DRUGS (3)
  1. LEVOTHYROXINE. [Interacting]
     Active Substance: LEVOTHYROXINE
     Dosage: 200MICROG DAILY
     Route: 065
  2. LEVOTHYROXINE. [Suspect]
     Active Substance: LEVOTHYROXINE
     Indication: THYROXINE THERAPY
     Dosage: 100MICROG DAILY
     Route: 065
  3. ERLOTINIB [Interacting]
     Active Substance: ERLOTINIB
     Indication: NON-SMALL CELL LUNG CANCER METASTATIC
     Route: 065

REACTIONS (3)
  - Drug interaction [Recovered/Resolved]
  - Hypothyroidism [Recovered/Resolved]
  - Hyperthyroidism [Recovered/Resolved]
